FAERS Safety Report 10799610 (Version 1)
Quarter: 2015Q1

REPORT INFORMATION
  Report Type: Report from Study
  Country: US (occurrence: US)
  Receive Date: 20150216
  Receipt Date: 20150216
  Transmission Date: 20150721
  Serious: No
  Sender: FDA-Public Use
  Company Number: US-ABBVIE-14K-163-1242996-00

PATIENT
  Sex: Female

DRUGS (2)
  1. TOPICAL CREAM [Concomitant]
     Active Substance: UNSPECIFIED INGREDIENT
     Indication: PSORIASIS
     Route: 061
  2. HUMIRA [Suspect]
     Active Substance: ADALIMUMAB
     Indication: PSORIATIC ARTHROPATHY
     Dosage: EVERY OTHER FRIDAY
     Dates: start: 201401

REACTIONS (2)
  - Arthralgia [Unknown]
  - Erythema [Unknown]

NARRATIVE: CASE EVENT DATE: 2014
